FAERS Safety Report 15250983 (Version 4)
Quarter: 2019Q2

REPORT INFORMATION
  Report Type: Report from Study
  Country: ZA (occurrence: ZA)
  Receive Date: 20180807
  Receipt Date: 20190510
  Transmission Date: 20190711
  Serious: Yes (Hospitalization, Other)
  Sender: FDA-Public Use
  Company Number: PHHY2018ZA061114

PATIENT
  Age: 32 Year
  Sex: Female

DRUGS (10)
  1. ULTAK [Concomitant]
     Active Substance: RANITIDINE HYDROCHLORIDE
     Indication: PRODUCT USED FOR UNKNOWN INDICATION
     Route: 065
  2. STILNOX [Concomitant]
     Active Substance: ZOLPIDEM TARTRATE
     Indication: PRODUCT USED FOR UNKNOWN INDICATION
     Route: 065
  3. ALTOSEC [Suspect]
     Active Substance: OMEPRAZOLE
     Indication: PRODUCT USED FOR UNKNOWN INDICATION
     Route: 065
  4. TRUSTAN [Concomitant]
     Active Substance: ESOMEPRAZOLE
     Indication: PRODUCT USED FOR UNKNOWN INDICATION
     Route: 065
  5. STILPANE [Concomitant]
     Indication: PRODUCT USED FOR UNKNOWN INDICATION
     Route: 065
  6. TUVIGIN [Suspect]
     Active Substance: FINGOLIMOD HYDROCHLORIDE
     Indication: MULTIPLE SCLEROSIS
     Dosage: 0.5 MG, UNK
     Route: 048
     Dates: start: 20180719
  7. CALCIFEROL [Concomitant]
     Indication: PRODUCT USED FOR UNKNOWN INDICATION
     Route: 065
  8. STILLEN [Concomitant]
     Indication: PRODUCT USED FOR UNKNOWN INDICATION
     Route: 065
  9. CORTISONE [Suspect]
     Active Substance: CORTISONE\HYDROCORTISONE
     Indication: MULTIPLE SCLEROSIS
     Dosage: UNK
     Route: 065
  10. GLUCOPHAGE [Concomitant]
     Active Substance: METFORMIN HYDROCHLORIDE
     Indication: PRODUCT USED FOR UNKNOWN INDICATION
     Route: 065

REACTIONS (18)
  - Gastric ulcer [Not Recovered/Not Resolved]
  - Heart rate decreased [Unknown]
  - Hypoaesthesia [Unknown]
  - Mobility decreased [Unknown]
  - Dyspepsia [Unknown]
  - Haematochezia [Unknown]
  - Bone pain [Unknown]
  - Headache [Not Recovered/Not Resolved]
  - Nausea [Unknown]
  - Burning sensation [Unknown]
  - Tremor [Unknown]
  - Pain [Unknown]
  - Blood pressure fluctuation [Unknown]
  - Multiple sclerosis relapse [Unknown]
  - Dizziness [Unknown]
  - Muscle spasms [Unknown]
  - Paraesthesia [Unknown]
  - Dyspnoea [Unknown]

NARRATIVE: CASE EVENT DATE: 20180719
